FAERS Safety Report 8574766-3 (Version None)
Quarter: 2012Q3

REPORT INFORMATION
  Report Type: 
  Country: None (occurrence: None)
  Receive Date: 20120807
  Receipt Date: 20120719
  Transmission Date: 20120928
  Serious: No
  Sender: FDA-Public Use
  Company Number: US-009507513-1207USA008653

PATIENT

DRUGS (8)
  1. LEVOTHYROXINE SODIUM [Concomitant]
  2. TYLENOL (CAPLET) [Concomitant]
  3. VICTRELIS [Suspect]
     Dosage: 800 MG, TID (EVERY 7-9 HOURS) WITH FOOD
  4. PEGASYS [Suspect]
     Dosage: 180 MICROGRAM/M
  5. NEXIUM [Concomitant]
  6. CHANTIX [Concomitant]
  7. IBUPROFEN [Concomitant]
  8. RIBAVIRIN [Suspect]
     Dosage: 1200/DAY

REACTIONS (10)
  - WHITE BLOOD CELL COUNT DECREASED [None]
  - NAUSEA [None]
  - HAEMOGLOBIN DECREASED [None]
  - HAEMATOCRIT DECREASED [None]
  - VOMITING [None]
  - FATIGUE [None]
  - WEIGHT DECREASED [None]
  - HEADACHE [None]
  - DYSGEUSIA [None]
  - DIARRHOEA [None]
